FAERS Safety Report 16959675 (Version 4)
Quarter: 2019Q4

REPORT INFORMATION
  Report Type: Spontaneous
  Country: US (occurrence: US)
  Receive Date: 20191025
  Receipt Date: 20191217
  Transmission Date: 20200122
  Serious: Yes (Other)
  Sender: FDA-Public Use
  Company Number: US-DSJP-DSU-2019-139240

PATIENT

DRUGS (2)
  1. TURALIO [Suspect]
     Active Substance: PEXIDARTINIB HYDROCHLORIDE
     Indication: MALIGNANT NEOPLASM OF CONJUNCTIVA
     Dosage: UNK
     Route: 048
     Dates: start: 20191201, end: 20191201
  2. TURALIO [Suspect]
     Active Substance: PEXIDARTINIB HYDROCHLORIDE
     Indication: PRODUCT USED FOR UNKNOWN INDICATION
     Dosage: 400 MG, BID
     Route: 048
     Dates: start: 20191003, end: 2019

REACTIONS (13)
  - Flatulence [Unknown]
  - Chills [Unknown]
  - Renal impairment [Unknown]
  - Hot flush [Unknown]
  - Pain in extremity [Recovering/Resolving]
  - Peripheral coldness [Recovered/Resolved]
  - Diarrhoea [Recovering/Resolving]
  - Pollakiuria [Unknown]
  - Immune system disorder [Unknown]
  - Off label use [Unknown]
  - Arthralgia [Unknown]
  - Parasitic gastroenteritis [Unknown]
  - Dizziness [Unknown]

NARRATIVE: CASE EVENT DATE: 2019
